APPROVED DRUG PRODUCT: PROMETHAZINE HYDROCHLORIDE
Active Ingredient: PROMETHAZINE HYDROCHLORIDE
Strength: 6.25MG/5ML
Dosage Form/Route: SYRUP;ORAL
Application: A040882 | Product #001
Applicant: AMNEAL PHARMACEUTICALS
Approved: Dec 30, 2009 | RLD: No | RS: No | Type: DISCN